FAERS Safety Report 6510602-4 (Version None)
Quarter: 2009Q4

REPORT INFORMATION
  Report Type: 
  Country: None (occurrence: None)
  Receive Date: 20091222
  Receipt Date: 20091103
  Transmission Date: 20100525
  Serious: No
  Sender: FDA-Public Use
  Company Number: US-ASTRAZENECA-2009SE24265

PATIENT
  Sex: Male
  Weight: 93 kg

DRUGS (2)
  1. CRESTOR [Suspect]
     Route: 048
     Dates: start: 20090901
  2. FLOMAX [Concomitant]

REACTIONS (1)
  - PROTEIN TOTAL INCREASED [None]
